FAERS Safety Report 4821404-9 (Version None)
Quarter: 2005Q4

REPORT INFORMATION
  Report Type: 
  Country: None (occurrence: None)
  Receive Date: 20051107
  Receipt Date: 20051025
  Transmission Date: 20060501
  Serious: Yes (Other)
  Sender: FDA-Public Use
  Company Number: PHEH2005US11876

PATIENT
  Age: 78 Year
  Sex: Male
  Weight: 81 kg

DRUGS (6)
  1. FOSAMAX [Concomitant]
  2. CALTRATE 600 + VITAMIN D [Concomitant]
  3. VYTORIN [Concomitant]
  4. VITAMINS [Concomitant]
  5. LOTREL [Suspect]
     Indication: HYPERTENSION
     Dosage: 5/20MG, QD
     Route: 048
     Dates: start: 20040701, end: 20041201
  6. LOTREL [Suspect]
     Dosage: 10/20MG, QD
     Route: 048
     Dates: start: 20041201

REACTIONS (6)
  - CATARACT OPERATION [None]
  - DRUG INEFFECTIVE [None]
  - DYSURIA [None]
  - EMBOLIC STROKE [None]
  - POLLAKIURIA [None]
  - URINARY TRACT INFECTION [None]
